FAERS Safety Report 6030452-5 (Version None)
Quarter: 2008Q4

REPORT INFORMATION
  Report Type: 
  Country: None (occurrence: None)
  Receive Date: 20081222
  Receipt Date: 20080909
  Transmission Date: 20090506
  Serious: Yes (Other)
  Sender: FDA-Public Use
  Company Number: US-WYE-H05280808

PATIENT
  Age: 17 Year
  Sex: Female
  Weight: 61.29 kg

DRUGS (2)
  1. PRISTIQ [Suspect]
     Indication: ANXIETY DISORDER
     Dosage: 50 MG 1X PER 1 DAY, ORAL
     Route: 048
     Dates: start: 20080723, end: 20080725
  2. LEXAPRO [Suspect]
     Indication: DEPRESSION
     Dosage: 25 MG 1X PER 1 DAY
     Dates: start: 20080404, end: 20080725

REACTIONS (1)
  - PALPITATIONS [None]
